FAERS Safety Report 5859314-0 (Version None)
Quarter: 2008Q3

REPORT INFORMATION
  Report Type: 
  Country: None (occurrence: None)
  Receive Date: 20080826
  Receipt Date: 20080826
  Transmission Date: 20090109
  Serious: Yes (Hospitalization)
  Sender: FDA-Public Use
  Company Number: None

PATIENT
  Age: 62 Year
  Sex: Male
  Weight: 83.37 kg

DRUGS (1)
  1. SODIUM PERTECHNETATE TC 99M [Suspect]
     Indication: ANGIOGRAM
     Dosage: 15 MG ONCE IV
     Route: 042
     Dates: start: 20080520, end: 20080520

REACTIONS (2)
  - PRURITUS [None]
  - URTICARIA [None]
